FAERS Safety Report 6098520-X (Version None)
Quarter: 2009Q1

REPORT INFORMATION
  Report Type: 
  Country: None (occurrence: None)
  Receive Date: 20090302
  Receipt Date: 20090224
  Transmission Date: 20090719
  Serious: Yes (Life-Threatening, Other)
  Sender: FDA-Public Use
  Company Number: DE-BAYER-200914638GPV

PATIENT
  Sex: Male

DRUGS (6)
  1. MOXIFLOXACIN HCL [Suspect]
     Indication: SEPSIS
     Dosage: TOTAL DAILY DOSE: 400 MG  UNIT DOSE: 400 MG
     Route: 041
     Dates: start: 20090206, end: 20090208
  2. MEROPENEM [Suspect]
     Indication: SEPSIS
     Dosage: TOTAL DAILY DOSE: 1000 MG
     Route: 041
     Dates: start: 20090206, end: 20090213
  3. PROPOFOL [Concomitant]
     Indication: SEDATION
     Route: 041
     Dates: start: 20090206, end: 20090211
  4. SUFENTANIL [Concomitant]
     Indication: SEDATION
     Dosage: TOTAL DAILY DOSE: 4.62 MG/KG
     Route: 041
     Dates: start: 20090206, end: 20090211
  5. SODIUM SELENITE [Concomitant]
     Indication: SEPSIS
     Route: 041
     Dates: start: 20090207, end: 20090210
  6. PANTOPRAZOLE SODIUM [Concomitant]
     Indication: PROPHYLAXIS AGAINST GASTROINTESTINAL ULCER
     Dosage: TOTAL DAILY DOSE: 80 MG
     Route: 041
     Dates: start: 20090206, end: 20090213

REACTIONS (4)
  - BRADYARRHYTHMIA [None]
  - ELECTROCARDIOGRAM QT PROLONGED [None]
  - HYPERSENSITIVITY [None]
  - STEVENS-JOHNSON SYNDROME [None]
